FAERS Safety Report 5582990-7 (Version None)
Quarter: 2007Q4

REPORT INFORMATION
  Report Type: 
  Country: None (occurrence: None)
  Receive Date: 20071231
  Receipt Date: 20071218
  Transmission Date: 20080405
  Serious: Yes (Hospitalization)
  Sender: FDA-Public Use
  Company Number: GXKR2007GB10868

PATIENT
  Age: 43 Year
  Sex: Female
  Weight: 52.1 kg

DRUGS (6)
  1. GLICLAZIDE (NGX)(GLICLAZIDE) UNKNOWN [Suspect]
  2. RAMIPRIL [Suspect]
  3. AMOXICILLIN [Concomitant]
  4. ATORVASTATIN CALCIUM [Suspect]
  5. AVANDAMET [Suspect]
  6. INSULIN (INSULIN) [Concomitant]

REACTIONS (2)
  - ABORTION SPONTANEOUS [None]
  - DRUG EXPOSURE DURING PREGNANCY [None]
